FAERS Safety Report 19946376 (Version 1)
Quarter: 2021Q4

REPORT INFORMATION
  Report Type: Report from Study
  Country: US (occurrence: US)
  Receive Date: 20211012
  Receipt Date: 20211012
  Transmission Date: 20220304
  Serious: Yes (Other)
  Sender: FDA-Public Use
  Company Number: US-SANOFI-00801141

PATIENT
  Age: 8 Year
  Sex: Female

DRUGS (1)
  1. DUPILUMAB [Suspect]
     Active Substance: DUPILUMAB
     Dosage: DRUG STRUCTURE DOSAGE: UTR DRUG INTERVAL DOSAGE: UTR

REACTIONS (2)
  - Autism spectrum disorder [Unknown]
  - Device use issue [Unknown]
